FAERS Safety Report 18738409 (Version 1)
Quarter: 2021Q1

REPORT INFORMATION
  Report Type: Other
  Country: US (occurrence: US)
  Receive Date: 20210113
  Receipt Date: 20210113
  Transmission Date: 20210419
  Serious: Yes (Death, Disabling)
  Sender: FDA-Public Use
  Company Number: US-NOSTRUM LABORATORIES, INC.-2105326

PATIENT

DRUGS (1)
  1. RANITIDINE HYDROCHLORIDE. [Suspect]
     Active Substance: RANITIDINE HYDROCHLORIDE
     Indication: PRODUCT USED FOR UNKNOWN INDICATION
     Route: 048

REACTIONS (6)
  - Oesophageal carcinoma [Fatal]
  - Brain cancer metastatic [Fatal]
  - Hepatic cancer metastatic [Fatal]
  - Gastric cancer [Fatal]
  - Lung neoplasm malignant [Fatal]
  - Bone cancer [Fatal]
